FAERS Safety Report 10836632 (Version 1)
Quarter: 2015Q1

REPORT INFORMATION
  Report Type: Spontaneous
  Country: CA (occurrence: None)
  Receive Date: 20150218
  Receipt Date: 20150218
  Transmission Date: 20150721
  Serious: Yes (Death, Hospitalization)
  Sender: FDA-Public Use
  Company Number: CA-ZYDUS-006570

PATIENT
  Age: 59 Year
  Sex: Female

DRUGS (1)
  1. HYDROXYCHLOROQUINE [Suspect]
     Active Substance: HYDROXYCHLOROQUINE
     Indication: RHEUMATOID ARTHRITIS

REACTIONS (10)
  - Cardiomyopathy [None]
  - Seizure [None]
  - Electrocardiogram repolarisation abnormality [None]
  - Systolic dysfunction [None]
  - Pleural effusion [None]
  - Bundle branch block right [None]
  - QRS axis abnormal [None]
  - Fall [None]
  - Cardiac failure [None]
  - Atrial fibrillation [None]
